FAERS Safety Report 8500463-6 (Version None)
Quarter: 2012Q3

REPORT INFORMATION
  Report Type: 
  Country: None (occurrence: None)
  Receive Date: 20120710
  Receipt Date: 20120702
  Transmission Date: 20120928
  Serious: Yes (Other)
  Sender: FDA-Public Use
  Company Number: SI-GLAXOSMITHKLINE-B0813512A

PATIENT
  Sex: Male

DRUGS (5)
  1. LACOSAMIDE [Concomitant]
  2. DIFETOIN [Concomitant]
  3. CARBAMAZEPINE [Concomitant]
  4. POTIGA [Suspect]
     Indication: EPILEPSY
     Dosage: 300MG PER DAY
     Route: 065
     Dates: start: 20120101
  5. LEVETIRACETAM [Concomitant]

REACTIONS (2)
  - EPILEPSY [None]
  - CONTUSION [None]
